FAERS Safety Report 7464971-1 (Version None)
Quarter: 2011Q2

REPORT INFORMATION
  Report Type: 
  Country: None (occurrence: None)
  Receive Date: 20110509
  Receipt Date: 20110427
  Transmission Date: 20111010
  Serious: Yes (Other)
  Sender: FDA-Public Use
  Company Number: US-JNJFOC-20110500452

PATIENT
  Sex: Female

DRUGS (10)
  1. FENTANYL [Suspect]
     Route: 062
  2. FENTANYL [Suspect]
     Route: 062
  3. ALL OTHER THERAPEUTIC PRODUCTS [Suspect]
     Indication: ARTHRITIS
     Route: 048
  4. FENTANYL [Suspect]
     Route: 062
  5. CELEBREX [Concomitant]
     Indication: ARTHRITIS
     Route: 048
  6. NEXIUM [Concomitant]
     Indication: GASTRIC DISORDER
     Route: 048
  7. FENTANYL [Suspect]
     Route: 062
  8. CYMBALTA [Concomitant]
     Indication: BIPOLAR DISORDER
     Route: 048
  9. FENTANYL [Suspect]
     Indication: PAIN
     Route: 062
  10. DIOVAN [Concomitant]
     Indication: HYPERTENSION
     Route: 048

REACTIONS (8)
  - ARTHRITIS [None]
  - WEIGHT DECREASED [None]
  - WRONG TECHNIQUE IN DRUG USAGE PROCESS [None]
  - WEIGHT INCREASED [None]
  - ABDOMINAL DISCOMFORT [None]
  - PRODUCT QUALITY ISSUE [None]
  - DRUG EFFECT DECREASED [None]
  - LIPIDS INCREASED [None]
